FAERS Safety Report 9877241 (Version 2)
Quarter: 2014Q2

REPORT INFORMATION
  Report Type: Spontaneous
  Country: US (occurrence: US)
  Receive Date: 20140206
  Receipt Date: 20140416
  Transmission Date: 20141212
  Serious: Yes (Other)
  Sender: FDA-Public Use
  Company Number: US-BAYER-2014-017465

PATIENT
  Age: 31 Year
  Sex: Female
  Weight: 63.7 kg

DRUGS (7)
  1. YAZ [Suspect]
  2. YASMIN [Suspect]
  3. OCELLA [Suspect]
  4. GIANVI [Suspect]
  5. AMOXICILLIN [Concomitant]
     Dosage: 500 MG, UNK
  6. ATIVAN [Concomitant]
     Dosage: 0.5 MG, UNK
  7. CIPROFLOXACIN [Concomitant]
     Dosage: 500 MG, UNK

REACTIONS (1)
  - Deep vein thrombosis [None]
